FAERS Safety Report 17371230 (Version 1)
Quarter: 2020Q1

REPORT INFORMATION
  Report Type: Spontaneous
  Country: US (occurrence: US)
  Receive Date: 20200205
  Receipt Date: 20200205
  Transmission Date: 20200409
  Serious: Yes (Hospitalization)
  Sender: FDA-Public Use
  Company Number: US-JNJFOC-20200142462

PATIENT
  Age: 58 Year
  Sex: Male

DRUGS (1)
  1. LISTERINE ORIGINAL [Suspect]
     Active Substance: EUCALYPTOL\MENTHOL\METHYL SALICYLATE\THYMOL
     Indication: PRODUCT USED FOR UNKNOWN INDICATION
     Route: 065

REACTIONS (10)
  - Bladder outlet obstruction [Recovered/Resolved]
  - Renal failure [Unknown]
  - Anion gap increased [Unknown]
  - Hepatic steatosis [Unknown]
  - Wrong technique in product usage process [Unknown]
  - Blood potassium increased [Unknown]
  - N-terminal prohormone brain natriuretic peptide increased [Unknown]
  - Pancreatitis [Recovered/Resolved]
  - Blood lactic acid increased [Unknown]
  - Toxicity to various agents [Unknown]
